FAERS Safety Report 24009567 (Version 1)
Quarter: 2024Q2

REPORT INFORMATION
  Report Type: Spontaneous
  Country: CN (occurrence: CN)
  Receive Date: 20240625
  Receipt Date: 20240625
  Transmission Date: 20240716
  Serious: Yes (Hospitalization, Other)
  Sender: FDA-Public Use
  Company Number: None

PATIENT
  Age: 16 Month
  Sex: Male
  Weight: 10 kg

DRUGS (11)
  1. CYCLOPHOSPHAMIDE [Suspect]
     Active Substance: CYCLOPHOSPHAMIDE
     Indication: Neuroblastoma
     Dosage: 0.416 G, ONE TIME IN ONE DAY, DILUTED WITH SODIUM CHLORIDE (NS) 250 ML, START TIME: 08:00 HRS
     Route: 041
     Dates: start: 20240507, end: 20240607
  2. CYCLOPHOSPHAMIDE [Suspect]
     Active Substance: CYCLOPHOSPHAMIDE
     Indication: Chemotherapy
  3. SODIUM CHLORIDE [Suspect]
     Active Substance: SODIUM CHLORIDE
     Indication: Medication dilution
     Dosage: 250 ML, ONE TIME IN ONE DAY, USED TO DILUTE CYCLOPHOSPHAMIDE 0.416 G, START TIME: 08:00
     Route: 041
     Dates: start: 20240507, end: 20240607
  4. SODIUM CHLORIDE [Suspect]
     Active Substance: SODIUM CHLORIDE
     Dosage: 200 ML, ONE TIME IN ONE DAY, USED TO DILUTE ETOPOSIDE 55 MG
     Route: 041
     Dates: start: 20240610, end: 20240610
  5. SODIUM CHLORIDE [Suspect]
     Active Substance: SODIUM CHLORIDE
     Dosage: 250 ML, ONE TIME IN ONE DAY, USED TO DILUTE CISPLATIN 31.2 MG
     Route: 041
     Dates: start: 20240508, end: 20240608
  6. SODIUM CHLORIDE [Suspect]
     Active Substance: SODIUM CHLORIDE
     Dosage: 20 ML, USED TO DILUTE VINCRISTINE SULFATE 0.52 MG
     Route: 042
     Dates: start: 20240507
  7. ETOPOSIDE [Suspect]
     Active Substance: ETOPOSIDE
     Indication: Neuroblastoma
     Dosage: 55 MG, ONE TIME IN ONE DAY, DILUTED WITH SODIUM CHLORIDE (NS) 200 ML
     Route: 041
     Dates: start: 20240610, end: 20240610
  8. ETOPOSIDE [Suspect]
     Active Substance: ETOPOSIDE
     Indication: Chemotherapy
  9. CISPLATIN [Suspect]
     Active Substance: CISPLATIN
     Indication: Neuroblastoma
     Dosage: 31.2 MG, ONE TIME IN ONE DAY, DILUTED WITH SODIUM CHLORIDE (NS) 250 ML
     Route: 041
     Dates: start: 20240508, end: 20240608
  10. CISPLATIN [Suspect]
     Active Substance: CISPLATIN
     Indication: Chemotherapy
  11. VINCRISTINE SULFATE [Suspect]
     Active Substance: VINCRISTINE SULFATE
     Indication: Neuroblastoma
     Dosage: 0.52 MG, DILUTED WITH SODIUM CHLORIDE (NS) 20ML
     Route: 042
     Dates: start: 20240507

REACTIONS (4)
  - Drug-induced liver injury [Recovering/Resolving]
  - Hepatic function abnormal [Recovering/Resolving]
  - Alanine aminotransferase increased [Recovering/Resolving]
  - Aspartate aminotransferase increased [Recovering/Resolving]

NARRATIVE: CASE EVENT DATE: 20240525
